FAERS Safety Report 23390923 (Version 1)
Quarter: 2024Q1

REPORT INFORMATION
  Report Type: Spontaneous
  Country: US (occurrence: US)
  Receive Date: 20240111
  Receipt Date: 20240111
  Transmission Date: 20240410
  Serious: Yes (Hospitalization)
  Sender: FDA-Public Use
  Company Number: US-BRISTOL-MYERS SQUIBB COMPANY-2024-005624

PATIENT
  Age: 81 Year
  Sex: Female
  Weight: 116.12 kg

DRUGS (1)
  1. POMALYST [Suspect]
     Active Substance: POMALIDOMIDE
     Indication: Plasma cell myeloma
     Dosage: 2 WEEKS ON AND 2 WEEKS OFF
     Route: 048

REACTIONS (2)
  - Blood potassium decreased [Unknown]
  - Off label use [Unknown]
